FAERS Safety Report 7725184-9 (Version None)
Quarter: 2011Q3

REPORT INFORMATION
  Report Type: 
  Country: None (occurrence: None)
  Receive Date: 20110901
  Receipt Date: 20110829
  Transmission Date: 20111222
  Serious: Yes (Other)
  Sender: FDA-Public Use
  Company Number: CA-ABBOTT-11P-028-0850183-00

PATIENT
  Sex: Male

DRUGS (1)
  1. MAVIK [Suspect]
     Indication: PRODUCT USED FOR UNKNOWN INDICATION
     Dosage: DAILY DOSE: 4MG
     Route: 048
     Dates: start: 20100601

REACTIONS (2)
  - LIMB DISCOMFORT [None]
  - PAIN IN EXTREMITY [None]
